FAERS Safety Report 5631131-6 (Version None)
Quarter: 2008Q1

REPORT INFORMATION
  Report Type: 
  Country: None (occurrence: None)
  Receive Date: 20080219
  Receipt Date: 20080211
  Transmission Date: 20080703
  Serious: Yes (Hospitalization)
  Sender: FDA-Public Use
  Company Number: GB-BOEHRINGER INGELHEIM GMBH, GERMANY-2008-UK-00239UK

PATIENT
  Sex: Female

DRUGS (8)
  1. PRAMIPEXOLE DIHYDROCHLORIDE [Suspect]
     Indication: PARKINSON'S DISEASE
     Route: 048
     Dates: start: 20040301
  2. PRAMIPEXOLE DIHYDROCHLORIDE [Suspect]
     Route: 048
  3. BUTRAN PATCHES [Suspect]
  4. MADOPAR [Concomitant]
     Dosage: 125 MG TDS
     Route: 048
  5. TELMISARTAN [Concomitant]
     Route: 048
  6. CITALOPRAM HYDROBROMIDE [Concomitant]
     Route: 048
  7. ADCAL D3 [Concomitant]
     Dosage: ONCE DAILY
     Route: 048
  8. ZOPICLONE [Concomitant]
     Route: 048

REACTIONS (4)
  - DYSKINESIA [None]
  - DYSPNOEA [None]
  - HALLUCINATION [None]
  - TREMOR [None]
